FAERS Safety Report 13285197 (Version 3)
Quarter: 2017Q2

REPORT INFORMATION
  Report Type: Spontaneous
  Country: US (occurrence: US)
  Receive Date: 20170301
  Receipt Date: 20170526
  Transmission Date: 20170830
  Serious: Yes (Other)
  Sender: FDA-Public Use
  Company Number: US-LUNDBECK-DKLU2026193

PATIENT
  Age: 18 Year
  Sex: Male

DRUGS (3)
  1. NORTHERA [Suspect]
     Active Substance: DROXIDOPA
     Indication: AUTONOMIC NEUROPATHY
     Route: 048
     Dates: start: 201701
  2. NORTHERA [Suspect]
     Active Substance: DROXIDOPA
     Indication: ORTHOSTATIC HYPOTENSION
     Dosage: TAKE WITH 100 MG FOR TOTAL OF 400 MG TID
     Route: 048
     Dates: start: 201702
  3. NORTHERA [Suspect]
     Active Substance: DROXIDOPA
     Dosage: TAKE WITH 300 MG FOR TOTAL OF 400 MG TID
     Route: 065
     Dates: start: 201702

REACTIONS (5)
  - Back pain [Unknown]
  - Gastritis [Unknown]
  - Drug ineffective [Unknown]
  - Arthralgia [Unknown]
  - Rotavirus infection [Recovered/Resolved]

NARRATIVE: CASE EVENT DATE: 20170201
